FAERS Safety Report 20541554 (Version 1)
Quarter: 2022Q1

REPORT INFORMATION
  Report Type: Spontaneous
  Country: US (occurrence: None)
  Receive Date: 20220302
  Receipt Date: 20220302
  Transmission Date: 20220424
  Serious: Yes (Disabling)
  Sender: FDA-Public Use
  Company Number: None

PATIENT
  Age: 25 Year
  Sex: Female
  Weight: 78.75 kg

DRUGS (2)
  1. EMGALITY [Suspect]
     Active Substance: GALCANEZUMAB-GNLM
     Indication: Migraine
     Dosage: OTHER QUANTITY : 1 INJECTION(S);?OTHER FREQUENCY : MONTHLY;?
     Route: 030
     Dates: start: 20211216, end: 20220120
  2. BUPROPION HYDROCHLORIDE [Concomitant]
     Active Substance: BUPROPION HYDROCHLORIDE

REACTIONS (15)
  - Depressed level of consciousness [None]
  - Anxiety [None]
  - Dissociative disorder [None]
  - Weight increased [None]
  - Nausea [None]
  - Dizziness [None]
  - Migraine [None]
  - Hypersensitivity [None]
  - Impaired work ability [None]
  - Impaired driving ability [None]
  - Panic attack [None]
  - Depression [None]
  - Speech disorder [None]
  - Amnesia [None]
  - Amnesia [None]

NARRATIVE: CASE EVENT DATE: 20220123
